FAERS Safety Report 11664279 (Version 1)
Quarter: 2015Q4

REPORT INFORMATION
  Report Type: Spontaneous
  Country: US (occurrence: None)
  Receive Date: 20151026
  Receipt Date: 20151026
  Transmission Date: 20160304
  Serious: Yes (Hospitalization)
  Sender: FDA-Public Use
  Company Number: None

PATIENT
  Age: 68 Year
  Sex: Male
  Weight: 112.95 kg

DRUGS (6)
  1. ASPIRIN. [Concomitant]
     Active Substance: ASPIRIN
  2. TAMSULOSIN [Concomitant]
     Active Substance: TAMSULOSIN
  3. KETOCONAZOLE 200 MG [Suspect]
     Active Substance: KETOCONAZOLE
     Indication: FOLLICULITIS
     Dosage: 2 TABLETS TOGETHER WEEKLY ORAL
     Route: 048
     Dates: start: 20151001, end: 20151008
  4. ESCITALOPRAM [Concomitant]
     Active Substance: ESCITALOPRAM OXALATE
  5. KETOCONAZOLE 200 MG [Suspect]
     Active Substance: KETOCONAZOLE
     Indication: TRANSIENT ACANTHOLYTIC DERMATOSIS
     Dosage: 2 TABLETS TOGETHER WEEKLY ORAL
     Route: 048
     Dates: start: 20151001, end: 20151008
  6. ATENOLOL. [Concomitant]
     Active Substance: ATENOLOL

REACTIONS (8)
  - Chills [None]
  - Hyperhidrosis [None]
  - Vomiting [None]
  - Malaise [None]
  - Pyrexia [None]
  - Nausea [None]
  - Malassezia infection [None]
  - Influenza [None]

NARRATIVE: CASE EVENT DATE: 20151008
